FAERS Safety Report 4275077-7 (Version None)
Quarter: 2004Q1

REPORT INFORMATION
  Report Type: 
  Country: None (occurrence: None)
  Receive Date: 20040116
  Receipt Date: 20040114
  Transmission Date: 20041129
  Serious: Yes (Hospitalization)
  Sender: FDA-Public Use
  Company Number: 2004193990JP

PATIENT
  Age: 53 Year
  Sex: Female

DRUGS (3)
  1. CAMPTOSAR [Suspect]
     Indication: COLORECTAL CANCER
     Dosage: 140 MG, CYCLIC, IV DRIP
     Route: 041
     Dates: start: 20031222, end: 20031222
  2. FLUOROURACIL [Suspect]
     Indication: COLORECTAL CANCER
     Dosage: 750 MG, CYCLIC
     Dates: start: 20031222, end: 20031222
  3. LEUCOVORIN CALCIUM [Suspect]
     Indication: COLORECTAL CANCER
     Dosage: 350 MG, CYCLIC, IV DRIP
     Route: 041
     Dates: start: 20031222, end: 20031222

REACTIONS (1)
  - DRUG ERUPTION [None]
